FAERS Safety Report 24189723 (Version 1)
Quarter: 2024Q3

REPORT INFORMATION
  Report Type: Spontaneous
  Country: US (occurrence: US)
  Receive Date: 20240808
  Receipt Date: 20240808
  Transmission Date: 20241016
  Serious: Yes (Death, Hospitalization, Other)
  Sender: VKT PHARMA PRIVATE LIMITED
  Company Number: US-VKT-000578

PATIENT
  Age: 40 Year
  Sex: Female
  Weight: 57 kg

DRUGS (5)
  1. LACOSAMIDE [Suspect]
     Active Substance: LACOSAMIDE
     Indication: Seizure
     Route: 065
  2. LEVETIRACETAM [Suspect]
     Active Substance: LEVETIRACETAM
     Indication: Seizure
     Dosage: 500 MG IN THE MORNING AND 750 MG IN THE EVENING
     Route: 065
  3. LEVETIRACETAM [Suspect]
     Active Substance: LEVETIRACETAM
     Indication: Seizure
     Route: 042
  4. LEVETIRACETAM [Suspect]
     Active Substance: LEVETIRACETAM
     Indication: Seizure
     Route: 065
  5. LEVETIRACETAM [Suspect]
     Active Substance: LEVETIRACETAM
     Indication: Seizure
     Dosage: 2000 MG EVERY 12 HOUR
     Route: 065

REACTIONS (8)
  - Acute respiratory distress syndrome [Unknown]
  - Drug ineffective [Unknown]
  - Seizure [Unknown]
  - Right ventricular dysfunction [Unknown]
  - Multiple-drug resistance [Unknown]
  - Pneumonia [Unknown]
  - Pneumothorax [Unknown]
  - Death [Fatal]
